FAERS Safety Report 15034994 (Version 1)
Quarter: 2018Q2

REPORT INFORMATION
  Report Type: Spontaneous
  Country: US (occurrence: US)
  Receive Date: 20180620
  Receipt Date: 20180620
  Transmission Date: 20180711
  Serious: Yes (Hospitalization, Other)
  Sender: FDA-Public Use
  Company Number: US-ASTRAZENECA-2017SE64537

PATIENT
  Sex: Female
  Weight: 35.8 kg

DRUGS (2)
  1. SYMBICORT [Suspect]
     Active Substance: BUDESONIDE\FORMOTEROL FUMARATE DIHYDRATE
     Indication: CHRONIC OBSTRUCTIVE PULMONARY DISEASE
     Dosage: TWO PUFFS TWO TIMES A DAY
     Route: 055
     Dates: start: 2017
  2. SYMBICORT [Suspect]
     Active Substance: BUDESONIDE\FORMOTEROL FUMARATE DIHYDRATE
     Indication: CHRONIC OBSTRUCTIVE PULMONARY DISEASE
     Dosage: ONE PUFF 3 TO 4 TIMES A DAY (AS REQUIRED) AS REQUIRED
     Route: 055
     Dates: start: 2017

REACTIONS (13)
  - Coma [Unknown]
  - Pulmonary oedema [Unknown]
  - Asthenia [Unknown]
  - Cyanosis [Unknown]
  - Intentional product misuse [Unknown]
  - Weight decreased [Unknown]
  - Lung disorder [Unknown]
  - Tooth abscess [Unknown]
  - Bacterial infection [Unknown]
  - Underdose [Unknown]
  - Pneumonia [Unknown]
  - Dyspnoea [Unknown]
  - Device malfunction [Unknown]

NARRATIVE: CASE EVENT DATE: 2017
